FAERS Safety Report 13348360 (Version 2)
Quarter: 2017Q1

REPORT INFORMATION
  Report Type: Spontaneous
  Country: AU (occurrence: AU)
  Receive Date: 20170320
  Receipt Date: 20170322
  Transmission Date: 20170428
  Serious: Yes (Death)
  Sender: FDA-Public Use
  Company Number: AU-BAXTER-2017BAX011614

PATIENT
  Sex: Female

DRUGS (13)
  1. WATER FOR RECONSTITUTION [Suspect]
     Active Substance: WATER
     Indication: PARENTERAL NUTRITION
     Route: 065
  2. SODUM ACETATE [Suspect]
     Active Substance: SODIUM ACETATE ANHYDROUS
     Indication: PARENTERAL NUTRITION
     Route: 065
  3. SODIUM CHLORIDE 4MMOL/ML [Suspect]
     Active Substance: SODIUM CHLORIDE
     Indication: PARENTERAL NUTRITION
     Route: 065
  4. GLUCOSE 70% [Suspect]
     Active Substance: DEXTROSE
     Indication: PARENTERAL NUTRITION
     Route: 065
  5. SMOFLIPID [Suspect]
     Active Substance: FISH OIL\MEDIUM-CHAIN TRIGLYCERIDES\OLIVE OIL\SOYBEAN OIL
     Indication: PARENTERAL NUTRITION
     Route: 065
  6. SYNTHAMIN [Suspect]
     Active Substance: AMINO ACIDS
     Indication: PARENTERAL NUTRITION
     Route: 065
  7. MAGNESIUM SULFATE 2MMOL/ML [Suspect]
     Active Substance: MAGNESIUM SULFATE
     Indication: PARENTERAL NUTRITION
     Route: 065
  8. AUSPEN TRACE ELEMENTS [Suspect]
     Active Substance: MINERALS
     Indication: PARENTERAL NUTRITION
     Route: 065
  9. [PSS GPN] SOLUVIT [Suspect]
     Active Substance: VITAMINS
     Indication: PARENTERAL NUTRITION
     Route: 065
  10. WATER FOR INJECTION [Suspect]
     Active Substance: WATER
     Indication: PARENTERAL NUTRITION
     Route: 065
  11. POTASSIUM CHLORIDE 3MMOL/ML [Suspect]
     Active Substance: POTASSIUM CHLORIDE
     Indication: PARENTERAL NUTRITION
     Route: 065
  12. CALCIUM GLUCONATE 0.15MMOL/ML [Suspect]
     Active Substance: CALCIUM GLUCONATE
     Indication: PARENTERAL NUTRITION
     Route: 065
  13. [PSS GPN] VITALIPID N INFANT [Suspect]
     Active Substance: .ALPHA.-TOCOPHEROL, DL-\ERGOCALCIFEROL\PHYTONADIONE\VITAMIN A PALMITATE
     Indication: PARENTERAL NUTRITION
     Route: 065

REACTIONS (1)
  - Brain injury [Fatal]
